FAERS Safety Report 4386547-5 (Version None)
Quarter: 2004Q2

REPORT INFORMATION
  Report Type: 
  Country: None (occurrence: None)
  Receive Date: 20040623
  Receipt Date: 20040608
  Transmission Date: 20050107
  Serious: Yes (Hospitalization, Other)
  Sender: FDA-Public Use
  Company Number: 200410389BNE

PATIENT
  Age: 67 Year
  Sex: Female
  Weight: 59 kg

DRUGS (5)
  1. CIPROFLOXACIN [Suspect]
     Indication: ABDOMINAL SEPSIS
     Dosage: 400 MG, BID, INTRAVENOUS
     Route: 042
     Dates: start: 20040511, end: 20040512
  2. ENOXAPARIN SODIUM [Concomitant]
  3. AMOXICILLIN AND CLAVULANATE POTASSIUM [Concomitant]
  4. PANTOPRAZOLE [Concomitant]
  5. METOCLOPRAMIDE [Concomitant]

REACTIONS (2)
  - BLOOD CALCIUM DECREASED [None]
  - GRAND MAL CONVULSION [None]
